FAERS Safety Report 6889333-7 (Version None)
Quarter: 2010Q3

REPORT INFORMATION
  Report Type: 
  Country: None (occurrence: None)
  Receive Date: 20100730
  Receipt Date: 20080206
  Transmission Date: 20110219
  Serious: No
  Sender: FDA-Public Use
  Company Number: US-PFIZER INC-2007108987

PATIENT
  Sex: Female
  Weight: 86.363 kg

DRUGS (1)
  1. LIPITOR [Suspect]
     Indication: BLOOD CHOLESTEROL
     Route: 048
     Dates: start: 20071201, end: 20071226

REACTIONS (12)
  - ABDOMINAL PAIN UPPER [None]
  - BACK PAIN [None]
  - CHEST PAIN [None]
  - DIZZINESS [None]
  - EMOTIONAL DISORDER [None]
  - FEELING ABNORMAL [None]
  - INFLUENZA [None]
  - MALAISE [None]
  - MYALGIA [None]
  - NASOPHARYNGITIS [None]
  - PAIN [None]
  - PAIN IN EXTREMITY [None]
